FAERS Safety Report 9173841 (Version 4)
Quarter: 2013Q4

REPORT INFORMATION
  Report Type: Spontaneous
  Country: US (occurrence: None)
  Receive Date: 20130318
  Receipt Date: 20131202
  Transmission Date: 20140711
  Serious: Yes (Hospitalization)
  Sender: FDA-Public Use
  Company Number: JPI-P-030423

PATIENT
  Age: 19 Year
  Sex: Female

DRUGS (1)
  1. XYREM(500 MILLIGRAM/MILLILITERS, SOLUTION)(SODIUM OXVBATE) [Suspect]
     Indication: NARCOLEPSY
     Dosage: SINGLE (UNSPECIFIED DOSE), ORAL
     Route: 048
     Dates: start: 20120221

REACTIONS (5)
  - Anxiety [None]
  - Eating disorder [None]
  - Decreased appetite [None]
  - Drug withdrawal syndrome [None]
  - Insomnia [None]
